FAERS Safety Report 16509877 (Version 2)
Quarter: 2019Q3

REPORT INFORMATION
  Report Type: Spontaneous
  Country: CA (occurrence: CA)
  Receive Date: 20190702
  Receipt Date: 20190704
  Transmission Date: 20191004
  Serious: Yes (Hospitalization, Other)
  Sender: FDA-Public Use
  Company Number: CA-ROCHE-2345345

PATIENT
  Age: 14 Year
  Sex: Male

DRUGS (2)
  1. ADVAIR HFA [Concomitant]
     Active Substance: FLUTICASONE PROPIONATE\SALMETEROL XINAFOATE
     Indication: PRODUCT USED FOR UNKNOWN INDICATION
     Route: 065
  2. XOLAIR [Suspect]
     Active Substance: OMALIZUMAB
     Indication: ASTHMA
     Route: 058
     Dates: start: 20121018, end: 20131023

REACTIONS (28)
  - Eye pruritus [Unknown]
  - Lacrimation increased [Unknown]
  - Feeling jittery [Unknown]
  - Nasal oedema [Unknown]
  - Rhinitis allergic [Unknown]
  - Asthma [Not Recovered/Not Resolved]
  - Conjunctivitis [Unknown]
  - Eye swelling [Unknown]
  - Middle insomnia [Unknown]
  - Rhinorrhoea [Unknown]
  - Blood immunoglobulin G increased [Unknown]
  - Nasal pruritus [Unknown]
  - Upper respiratory tract infection [Unknown]
  - Blood immunoglobulin A decreased [Unknown]
  - Lower respiratory tract infection [Unknown]
  - Ocular hyperaemia [Unknown]
  - Sneezing [Unknown]
  - Weight increased [Unknown]
  - Cough [Unknown]
  - Diarrhoea [Unknown]
  - Nasal obstruction [Unknown]
  - Breath sounds abnormal [Unknown]
  - Abdominal pain [Unknown]
  - Constipation [Unknown]
  - Upper-airway cough syndrome [Unknown]
  - Dyspnoea [Unknown]
  - Wheezing [Unknown]
  - Aspergillus infection [Unknown]

NARRATIVE: CASE EVENT DATE: 2019
